FAERS Safety Report 5284108-7 (Version None)
Quarter: 2007Q2

REPORT INFORMATION
  Report Type: 
  Country: None (occurrence: None)
  Receive Date: 20070403
  Receipt Date: 20070328
  Transmission Date: 20071010
  Serious: Yes (Other)
  Sender: FDA-Public Use
  Company Number: HQWYE986428MAR07

PATIENT
  Age: 73 Year
  Sex: Male

DRUGS (6)
  1. CORDARONE [Suspect]
     Indication: TACHYCARDIA
     Route: 048
     Dates: start: 20070301, end: 20070301
  2. CORDARONE [Suspect]
     Route: 048
     Dates: start: 20070301
  3. OMEPRAZOLE [Concomitant]
  4. KAYEXALATE [Concomitant]
  5. PREVISCAN [Suspect]
     Indication: TACHYCARDIA
     Route: 048
     Dates: start: 20070301
  6. BISOPROLOL FUMARATE [Suspect]
     Indication: TACHYCARDIA
     Route: 048
     Dates: start: 20070301

REACTIONS (3)
  - DIZZINESS [None]
  - LOSS OF CONSCIOUSNESS [None]
  - MALAISE [None]
